FAERS Safety Report 17047989 (Version 1)
Quarter: 2019Q4

REPORT INFORMATION
  Report Type: Spontaneous
  Country: US (occurrence: US)
  Receive Date: 20191119
  Receipt Date: 20191119
  Transmission Date: 20200122
  Serious: No
  Sender: FDA-Public Use
  Company Number: US-TEVA-2019-US-1137025

PATIENT
  Age: 62 Year
  Sex: Female

DRUGS (1)
  1. LORAZEPAM. [Suspect]
     Active Substance: LORAZEPAM
     Indication: ANXIETY
     Route: 065

REACTIONS (6)
  - Chapped lips [Unknown]
  - Burning sensation [Unknown]
  - Dry skin [Unknown]
  - Dry throat [Unknown]
  - Dry mouth [Unknown]
  - Dysphonia [Unknown]

NARRATIVE: CASE EVENT DATE: 20191003
